FAERS Safety Report 9900793 (Version 2)
Quarter: 2014Q1

REPORT INFORMATION
  Report Type: Spontaneous
  Country: IT (occurrence: IT)
  Receive Date: 20140217
  Receipt Date: 20140219
  Transmission Date: 20141002
  Serious: Yes (Other)
  Sender: FDA-Public Use
  Company Number: IT-TEVA-460952ISR

PATIENT
  Age: 61 Year
  Sex: Female

DRUGS (1)
  1. CLARITHROMYCIN [Suspect]
     Indication: PNEUMONIA
     Route: 065

REACTIONS (2)
  - Dermatomyositis [Recovered/Resolved]
  - Immune thrombocytopenic purpura [Recovered/Resolved]
